FAERS Safety Report 7101654-1 (Version None)
Quarter: 2010Q4

REPORT INFORMATION
  Report Type: 
  Country: None (occurrence: None)
  Receive Date: 20101115
  Receipt Date: 20101109
  Transmission Date: 20110411
  Serious: No
  Sender: FDA-Public Use
  Company Number: US-BAYER-201040769NA

PATIENT
  Age: 27 Year
  Sex: Female

DRUGS (1)
  1. MIRENA [Suspect]
     Indication: PRODUCT USED FOR UNKNOWN INDICATION
     Dosage: FREQUENCY CONTINUOUS
     Route: 015
     Dates: start: 20100518, end: 20101026

REACTIONS (3)
  - MENSTRUATION DELAYED [None]
  - MUSCLE SPASMS [None]
  - PREGNANCY WITH CONTRACEPTIVE DEVICE [None]
